FAERS Safety Report 13702039 (Version 1)
Quarter: 2017Q2

REPORT INFORMATION
  Report Type: Spontaneous
  Country: US (occurrence: US)
  Receive Date: 20170629
  Receipt Date: 20170629
  Transmission Date: 20170830
  Serious: No
  Sender: FDA-Public Use
  Company Number: US-JNJFOC-20160907108

PATIENT
  Age: 62 Year
  Sex: Male
  Weight: 86.18 kg

DRUGS (4)
  1. NEXIUM [Concomitant]
     Active Substance: ESOMEPRAZOLE MAGNESIUM
     Indication: GASTROOESOPHAGEAL REFLUX DISEASE
     Route: 065
  2. NIZORAL A-D [Suspect]
     Active Substance: KETOCONAZOLE
     Indication: SKIN EXFOLIATION
     Route: 061
  3. NIZORAL A-D [Suspect]
     Active Substance: KETOCONAZOLE
     Indication: SKIN EXFOLIATION
     Dosage: QUARTER SIZE
     Route: 061
  4. VITAMIN D [Concomitant]
     Active Substance: CHOLECALCIFEROL
     Indication: NUTRITIONAL SUPPLEMENTATION
     Route: 065

REACTIONS (1)
  - Drug ineffective [Unknown]
